FAERS Safety Report 25778421 (Version 1)
Quarter: 2025Q3

REPORT INFORMATION
  Report Type: Spontaneous
  Country: US (occurrence: US)
  Receive Date: 20250909
  Receipt Date: 20250909
  Transmission Date: 20251021
  Serious: No
  Sender: MACLEODS
  Company Number: US-MACLEODS PHARMA-MAC2025055026

PATIENT

DRUGS (3)
  1. NYSTATIN\TRIAMCINOLONE [Suspect]
     Active Substance: NYSTATIN\TRIAMCINOLONE
     Indication: Pruritus genital
     Dosage: NDC: 33342-482-30
     Route: 065
     Dates: start: 20250825, end: 20250825
  2. LISINOPRIL [Concomitant]
     Active Substance: LISINOPRIL
     Indication: Product used for unknown indication
     Route: 065
  3. PRAVASTATIN SODIUM [Concomitant]
     Active Substance: PRAVASTATIN SODIUM
     Indication: Product used for unknown indication
     Route: 065

REACTIONS (2)
  - Product quality issue [Unknown]
  - Burning sensation [Recovered/Resolved]

NARRATIVE: CASE EVENT DATE: 20250825
